FAERS Safety Report 15451774 (Version 2)
Quarter: 2018Q4

REPORT INFORMATION
  Report Type: Report from Study
  Country: ZA (occurrence: ZA)
  Receive Date: 20181001
  Receipt Date: 20181109
  Transmission Date: 20190204
  Serious: No
  Sender: FDA-Public Use
  Company Number: ZA-SA-2018SA262113

PATIENT
  Age: 61 Year
  Sex: Male

DRUGS (6)
  1. OPTISULIN (INSULIN GLARGINE) [Suspect]
     Active Substance: INSULIN GLARGINE
     Indication: TYPE 2 DIABETES MELLITUS
     Dosage: 16 U, BID
     Route: 065
     Dates: start: 20180826
  2. ECOTRIN [Concomitant]
     Active Substance: ASPIRIN
     Dosage: BEFORE BREAKFAST 81 MG
     Dates: start: 20180826
  3. VILDAGLIPTIN [Concomitant]
     Active Substance: VILDAGLIPTIN
     Dosage: BEFORE BREAKFAST 50 MG
     Dates: start: 20180826
  4. METFORMIN [Concomitant]
     Active Substance: METFORMIN HYDROCHLORIDE
     Dosage: AFTER SUPPER 80 MG, AFTER BREAKFAST: 850 MG
     Dates: start: 20180826
  5. NO STUDY DRUG GIVEN [Suspect]
     Active Substance: UNSPECIFIED INGREDIENT
  6. ADCO-SIMVASTATIN [Concomitant]
     Active Substance: SIMVASTATIN
     Dosage: BEFORE BED TIME 10 MG
     Dates: start: 20180826

REACTIONS (2)
  - Glycosylated haemoglobin increased [Unknown]
  - Off label use [Unknown]

NARRATIVE: CASE EVENT DATE: 20180826
